FAERS Safety Report 22115595 (Version 1)
Quarter: 2023Q1

REPORT INFORMATION
  Report Type: Report from Study
  Country: US (occurrence: US)
  Receive Date: 20230320
  Receipt Date: 20230320
  Transmission Date: 20230418
  Serious: Yes (Other)
  Sender: FDA-Public Use
  Company Number: US-UCBSA-2023013170

PATIENT
  Sex: Male

DRUGS (3)
  1. BRIVARACETAM [Suspect]
     Active Substance: BRIVARACETAM
     Indication: Seizure
     Dosage: 50 MILLIGRAM, ONCE DAILY (QD)EVERY NIGHT
  2. BRIVARACETAM [Suspect]
     Active Substance: BRIVARACETAM
     Dosage: 25 MILLIGRAM, ONCE DAILY (QD) EVERY MORNING
  3. BRIVARACETAM [Suspect]
     Active Substance: BRIVARACETAM
     Dosage: 50 MILLIGRAM, ONCE DAILY (QD)EVERY NIGHT

REACTIONS (3)
  - Seizure [Unknown]
  - Confusional state [Unknown]
  - Drug ineffective [Unknown]
